FAERS Safety Report 7354974-X (Version None)
Quarter: 2011Q1

REPORT INFORMATION
  Report Type: 
  Country: None (occurrence: None)
  Receive Date: 20110316
  Receipt Date: 20110304
  Transmission Date: 20110831
  Serious: No
  Sender: FDA-Public Use
  Company Number: B0704662A

PATIENT
  Age: 10 Year
  Sex: Female

DRUGS (2)
  1. RELENZA [Suspect]
     Dosage: 15MG PER DAY
     Route: 055
     Dates: start: 20110304, end: 20110304
  2. RELENZA [Suspect]
     Indication: INFLUENZA
     Dosage: 20MG PER DAY
     Route: 055
     Dates: start: 20110303, end: 20110303

REACTIONS (2)
  - OVERDOSE [None]
  - NO ADVERSE EVENT [None]
